FAERS Safety Report 4416771-4 (Version None)
Quarter: 2004Q3

REPORT INFORMATION
  Report Type: 
  Country: None (occurrence: None)
  Receive Date: 20040802
  Receipt Date: 20040726
  Transmission Date: 20050211
  Serious: Yes (Death)
  Sender: FDA-Public Use
  Company Number: 2004-118788-NL

PATIENT
  Age: 44 Year
  Sex: Male

DRUGS (3)
  1. MIRTAZAPINE [Suspect]
     Indication: DEPRESSION
     Dosage: 30 MG / 45 MG
     Route: 048
     Dates: start: 20031124
  2. MIRTAZAPINE [Suspect]
     Indication: DEPRESSION
     Dosage: 30 MG / 45 MG
     Route: 048
     Dates: start: 20031205
  3. ZOPICLONE [Concomitant]

REACTIONS (2)
  - COMPLETED SUICIDE [None]
  - MOOD ALTERED [None]
